FAERS Safety Report 5310464-7 (Version None)
Quarter: 2007Q2

REPORT INFORMATION
  Report Type: 
  Country: None (occurrence: None)
  Receive Date: 20070427
  Receipt Date: 20070416
  Transmission Date: 20071010
  Serious: Yes (Hospitalization, Congenital Anomaly)
  Sender: FDA-Public Use
  Company Number: FR-PFIZER INC-2007032044

PATIENT
  Sex: Male
  Weight: 3.06 kg

DRUGS (5)
  1. ATARAX [Suspect]
     Dosage: DAILY DOSE:50MG
     Dates: start: 20060617, end: 20061216
  2. HALDOL [Suspect]
     Dosage: DAILY DOSE:5MG
     Dates: start: 20060617, end: 20061216
  3. DOMPERIDONE [Suspect]
     Dosage: TEXT:3 DF
     Dates: start: 20060617, end: 20061216
  4. SPECIAFOLDINE [Concomitant]
  5. VENTOLIN [Concomitant]

REACTIONS (7)
  - AGITATION [None]
  - CONGENITAL FOOT MALFORMATION [None]
  - DRUG EXPOSURE DURING PREGNANCY [None]
  - MULTIPLE CONGENITAL ABNORMALITIES [None]
  - NEONATAL DISORDER [None]
  - SYNDACTYLY [None]
  - TREMOR NEONATAL [None]
